FAERS Safety Report 26060860 (Version 1)
Quarter: 2025Q4

REPORT INFORMATION
  Report Type: Spontaneous
  Country: US (occurrence: US)
  Receive Date: 20251118
  Receipt Date: 20251118
  Transmission Date: 20260117
  Serious: No
  Sender: INCYTE
  Company Number: US-EVENT-004838

PATIENT

DRUGS (1)
  1. OPZELURA [Suspect]
     Active Substance: RUXOLITINIB PHOSPHATE
     Indication: Blepharitis
     Dosage: UNK, BID
     Route: 065

REACTIONS (7)
  - Back pain [Unknown]
  - Vomiting [Unknown]
  - Nausea [Unknown]
  - Head discomfort [Recovering/Resolving]
  - Headache [Unknown]
  - Chromaturia [Unknown]
  - Off label use [Unknown]
